FAERS Safety Report 5127882-2 (Version None)
Quarter: 2006Q4

REPORT INFORMATION
  Report Type: 
  Country: None (occurrence: None)
  Receive Date: 20061016
  Receipt Date: 20061006
  Transmission Date: 20070319
  Serious: Yes (Life-Threatening)
  Sender: FDA-Public Use
  Company Number: GR-ABBOTT-06P-066-0346343-00

PATIENT
  Age: 29 Year
  Sex: Male
  Weight: 57 kg

DRUGS (3)
  1. KALETRA [Suspect]
     Indication: HIV INFECTION
     Route: 048
     Dates: start: 20060707, end: 20060726
  2. TRUVADA [Suspect]
     Indication: HIV INFECTION
     Route: 048
     Dates: start: 20060707, end: 20060726
  3. BACTRIM [Suspect]
     Indication: PROPHYLAXIS
     Route: 048
     Dates: start: 20060629, end: 20060726

REACTIONS (2)
  - RED BLOOD CELL ABNORMALITY [None]
  - RENAL FAILURE [None]
